FAERS Safety Report 9893736 (Version 2)
Quarter: 2014Q2

REPORT INFORMATION
  Report Type: Spontaneous
  Country: US (occurrence: US)
  Receive Date: 20140213
  Receipt Date: 20140402
  Transmission Date: 20141212
  Serious: Yes (Congenital Anomaly, Other)
  Sender: FDA-Public Use
  Company Number: US-PFIZER INC-2014039944

PATIENT
  Sex: Male

DRUGS (11)
  1. ZOLOFT [Suspect]
     Dosage: UNK
     Route: 064
     Dates: start: 2009, end: 2010
  2. SERTRALINE HCL [Suspect]
     Dosage: UNK
     Route: 064
     Dates: start: 2009, end: 2010
  3. HYDROXYZINE [Concomitant]
     Dosage: UNK
     Route: 064
  4. CEPHALEXIN [Concomitant]
     Dosage: UNK
     Route: 064
  5. AZITHROMYCIN [Concomitant]
     Dosage: UNK
     Route: 064
  6. SUDOGEST [Concomitant]
     Dosage: UNK
     Route: 064
  7. PROMETHAZINE [Concomitant]
     Dosage: UNK
     Route: 064
  8. CITALOPRAM [Concomitant]
     Dosage: UNK
     Route: 064
  9. FLINTSTONE VITAMINS [Concomitant]
     Dosage: UNK
     Route: 064
  10. TYLENOL [Concomitant]
     Dosage: UNK
     Route: 064
  11. PRENATAL VITAMINS [Concomitant]
     Dosage: UNK
     Route: 064

REACTIONS (5)
  - Maternal exposure during pregnancy [Unknown]
  - Pulmonary artery stenosis congenital [Unknown]
  - Right ventricle outflow tract obstruction [Unknown]
  - Atrial septal defect [Unknown]
  - Pulmonary valve stenosis [Unknown]
